FAERS Safety Report 5760001-8 (Version None)
Quarter: 2008Q2

REPORT INFORMATION
  Report Type: 
  Country: None (occurrence: None)
  Receive Date: 20080605
  Receipt Date: 20080528
  Transmission Date: 20081010
  Serious: Yes (Other)
  Sender: FDA-Public Use
  Company Number: JP-ASTRAZENECA-2008AP04187

PATIENT
  Age: 74 Year
  Sex: Male

DRUGS (7)
  1. DIPRIVAN [Suspect]
     Dosage: DOSE UNKNOWN
     Route: 042
  2. PIPERACILLIN SODIUM [Suspect]
     Dosage: DOSE UNKNOWN
     Route: 041
  3. HYPNOTICS AND SEDATIVES, ANTIANXIETICS [Suspect]
     Dosage: DOSE UNKNOWN
     Route: 065
  4. NICARDIPINE HYDROCHLORIDE [Suspect]
     Dosage: DOSE UNKNOWN
     Route: 065
  5. FAMOTIDINE [Suspect]
     Dosage: DOSE UNKNOWN
     Route: 065
  6. INDOMETHACIN [Suspect]
     Dosage: DOSE UNKNOWN
     Route: 065
  7. ATROPINE SULFATE [Suspect]
     Dosage: DOSE UNKNOWN
     Route: 065

REACTIONS (1)
  - URTICARIA [None]
